FAERS Safety Report 22705555 (Version 4)
Quarter: 2023Q4

REPORT INFORMATION
  Report Type: Report from Study
  Country: US (occurrence: US)
  Receive Date: 20230714
  Receipt Date: 20231003
  Transmission Date: 20240110
  Serious: Yes (Other)
  Sender: FDA-Public Use
  Company Number: US-002147023-NVSC2023US155504

PATIENT
  Sex: Female

DRUGS (1)
  1. KISQALI [Suspect]
     Active Substance: RIBOCICLIB
     Indication: Product used for unknown indication
     Dosage: UNK (SHE HAS BEEN ON TREATMENT FOR 2 WEEKS)
     Route: 065

REACTIONS (11)
  - Recurrent cancer [Unknown]
  - Feeding disorder [Unknown]
  - Hypotension [Unknown]
  - Hypoaesthesia oral [Unknown]
  - Pharyngeal hypoaesthesia [Unknown]
  - Constipation [Unknown]
  - Product use issue [Unknown]
  - Swelling [Unknown]
  - Product dose omission issue [Unknown]
  - Back pain [Unknown]
  - Insomnia [Unknown]
